FAERS Safety Report 4779876-4 (Version None)
Quarter: 2005Q3

REPORT INFORMATION
  Report Type: 
  Country: None (occurrence: None)
  Receive Date: 20050914
  Receipt Date: 20050706
  Transmission Date: 20060218
  Serious: Yes (Other)
  Sender: FDA-Public Use
  Company Number: 163-20785-05040223

PATIENT
  Sex: Male

DRUGS (8)
  1. THALIDOMIDE OR PLACEBO (THALIDOMIDE) [Suspect]
     Indication: PROSTATIC INTRAEPITHELIAL NEOPLASIA
     Dosage: SEE IMAGE
     Dates: start: 20010507
  2. THALIDOMIDE OR PLACEBO (THALIDOMIDE) [Suspect]
     Indication: PROSTATIC INTRAEPITHELIAL NEOPLASIA
     Dosage: SEE IMAGE
     Dates: start: 20030811
  3. THALIDOMIDE OR PLACEBO (THALIDOMIDE) [Suspect]
     Indication: PROSTATIC INTRAEPITHELIAL NEOPLASIA
     Dosage: SEE IMAGE
     Dates: start: 20040913
  4. . [Concomitant]
  5. . [Concomitant]
  6. LEUPROLIDE ACETATE [Suspect]
     Indication: PROSTATIC INTRAEPITHELIAL NEOPLASIA
     Dosage: SEE IMAGE
     Dates: start: 20010507
  7. LEUPROLIDE ACETATE [Suspect]
     Indication: PROSTATIC INTRAEPITHELIAL NEOPLASIA
     Dosage: SEE IMAGE
     Dates: start: 20030811
  8. . [Concomitant]

REACTIONS (2)
  - CATARACT [None]
  - SINUS BRADYCARDIA [None]
